FAERS Safety Report 9049879 (Version 1)
Quarter: 2013Q1

REPORT INFORMATION
  Report Type: Spontaneous
  Country: US (occurrence: US)
  Receive Date: 20130205
  Receipt Date: 20130205
  Transmission Date: 20140127
  Serious: Yes (Other)
  Sender: FDA-Public Use
  Company Number: US-PFIZER INC-2013041026

PATIENT
  Sex: Male

DRUGS (1)
  1. VIAGRA [Suspect]
     Dosage: UNK

REACTIONS (5)
  - Dyspnoea [Unknown]
  - Flushing [Unknown]
  - Pollakiuria [Unknown]
  - Nasal congestion [Unknown]
  - Drug ineffective [Unknown]
